FAERS Safety Report 6748801-9 (Version None)
Quarter: 2010Q2

REPORT INFORMATION
  Report Type: 
  Country: None (occurrence: None)
  Receive Date: 20100601
  Receipt Date: 20100521
  Transmission Date: 20101027
  Serious: Yes (Hospitalization)
  Sender: FDA-Public Use
  Company Number: PHHO2010DE07678

PATIENT
  Sex: Male
  Weight: 87 kg

DRUGS (5)
  1. BLINDED ALISKIREN ALI+TAB+CF [Suspect]
     Indication: CARDIAC FAILURE ACUTE
     Dosage: CODE NOT BROKEN
     Route: 048
     Dates: start: 20100430, end: 20100520
  2. BLINDED NO TREATMENT RECEIVED NOMED [Suspect]
     Indication: CARDIAC FAILURE ACUTE
     Dosage: CODE NOT BROKEN
     Route: 048
     Dates: start: 20100430, end: 20100520
  3. BLINDED PLACEBO COMP-PLA+ [Suspect]
     Indication: CARDIAC FAILURE ACUTE
     Dosage: CODE NOT BROKEN
     Route: 048
     Dates: start: 20100430, end: 20100520
  4. METOPROLOL TARTRATE [Suspect]
     Dosage: UNK
     Dates: start: 20040101, end: 20100521
  5. DIGITOXIN [Suspect]
     Indication: CARDIAC FAILURE
     Dosage: UNK
     Dates: start: 20040101, end: 20100521

REACTIONS (7)
  - BLOOD CREATININE INCREASED [None]
  - BLOOD PRESSURE DECREASED [None]
  - BRADYARRHYTHMIA [None]
  - DIZZINESS [None]
  - DYSPNOEA EXERTIONAL [None]
  - GLOMERULAR FILTRATION RATE DECREASED [None]
  - HEART RATE DECREASED [None]
